FAERS Safety Report 5028212-7 (Version None)
Quarter: 2006Q2

REPORT INFORMATION
  Report Type: 
  Country: None (occurrence: None)
  Receive Date: 20060613
  Receipt Date: 20060602
  Transmission Date: 20061013
  Serious: Yes (Hospitalization)
  Sender: FDA-Public Use
  Company Number: 2006-05-1128

PATIENT
  Age: 42 Year
  Sex: Male
  Weight: 72 kg

DRUGS (2)
  1. PEG-INTRON [Suspect]
     Indication: HEPATITIS C
     Dosage: 100 MCG QW SUBCUTANEOUS
     Route: 058
     Dates: start: 20050428, end: 20050715
  2. REBETOL [Suspect]
     Indication: HEPATITIS C
     Dosage: 800 MG ORAL
     Route: 048
     Dates: start: 20050425, end: 20050715

REACTIONS (3)
  - FAECES DISCOLOURED [None]
  - GASTRIC ULCER HAEMORRHAGE [None]
  - HAEMATEMESIS [None]
